FAERS Safety Report 11434579 (Version 1)
Quarter: 2015Q3

REPORT INFORMATION
  Report Type: Spontaneous
  Country: US (occurrence: None)
  Receive Date: 20150828
  Receipt Date: 20150828
  Transmission Date: 20151125
  Serious: No
  Sender: FDA-Public Use
  Company Number: None

PATIENT
  Age: 63 Year
  Sex: Female

DRUGS (1)
  1. CAPECITABINE. [Suspect]
     Active Substance: CAPECITABINE
     Dosage: UD
     Route: 048
     Dates: start: 20150609

REACTIONS (10)
  - Pruritus [None]
  - Middle insomnia [None]
  - Mental disorder [None]
  - Gait disturbance [None]
  - Diarrhoea [None]
  - Pain in extremity [None]
  - Impaired work ability [None]
  - Dry skin [None]
  - Skin exfoliation [None]
  - Musculoskeletal stiffness [None]

NARRATIVE: CASE EVENT DATE: 20150801
